FAERS Safety Report 13021726 (Version 2)
Quarter: 2017Q1

REPORT INFORMATION
  Report Type: Report from Study
  Country: US (occurrence: US)
  Receive Date: 20161213
  Receipt Date: 20170307
  Transmission Date: 20170428
  Serious: Yes (Other)
  Sender: FDA-Public Use
  Company Number: US-009507513-1611USA010097

PATIENT
  Age: 70 Year
  Sex: Female

DRUGS (2)
  1. LIPITOR [Concomitant]
     Active Substance: ATORVASTATIN CALCIUM
  2. PEMBROLIZUMAB. [Suspect]
     Active Substance: PEMBROLIZUMAB
     Indication: LUNG NEOPLASM MALIGNANT
     Dosage: UNK
     Route: 042
     Dates: start: 2016, end: 2016

REACTIONS (10)
  - Fall [Not Recovered/Not Resolved]
  - Pain [Unknown]
  - Nausea [Recovering/Resolving]
  - Movement disorder [Recovering/Resolving]
  - Increased appetite [Unknown]
  - Dizziness [Recovering/Resolving]
  - Gait disturbance [Not Recovered/Not Resolved]
  - Nausea [Recovered/Resolved]
  - Malignant neoplasm progression [Unknown]
  - Neuropathy peripheral [Recovering/Resolving]

NARRATIVE: CASE EVENT DATE: 2016
